FAERS Safety Report 19247914 (Version 1)
Quarter: 2021Q2

REPORT INFORMATION
  Report Type: Spontaneous
  Country: FR (occurrence: FR)
  Receive Date: 20210512
  Receipt Date: 20210512
  Transmission Date: 20210717
  Serious: Yes (Hospitalization)
  Sender: FDA-Public Use
  Company Number: FR-MEITHEAL PHARMACEUTICALS-2021MHL00043

PATIENT
  Age: 59 Year
  Sex: Female

DRUGS (2)
  1. CYCLOPHOSPHAMIDE. [Concomitant]
     Active Substance: CYCLOPHOSPHAMIDE
     Dosage: 600 MG/M2
     Route: 065
  2. DOCETAXEL. [Suspect]
     Active Substance: DOCETAXEL
     Indication: BREAST CANCER
     Dosage: 75 MG/M2
     Route: 065

REACTIONS (6)
  - Posterior reversible encephalopathy syndrome [Recovered/Resolved]
  - Interstitial lung disease [Recovered/Resolved]
  - Cardiac failure [Recovered/Resolved]
  - Thrombotic microangiopathy [Recovered/Resolved]
  - Scleroderma renal crisis [Recovered/Resolved]
  - Systemic scleroderma [Recovered/Resolved]
